FAERS Safety Report 24095727 (Version 1)
Quarter: 2024Q3

REPORT INFORMATION
  Report Type: Spontaneous
  Country: US (occurrence: None)
  Receive Date: 20240715
  Receipt Date: 20240715
  Transmission Date: 20241017
  Serious: Yes (Death)
  Sender: Public
  Company Number: None

PATIENT
  Age: 77 Year
  Sex: Female
  Weight: 71.9 kg

DRUGS (1)
  1. IBRANCE [Suspect]
     Active Substance: PALBOCICLIB
     Indication: Breast cancer female
     Dosage: OTHER FREQUENCY : DAYS 1-21, THEN TAKE 7 DAYS OFF ;?
     Dates: start: 20240530

REACTIONS (1)
  - Aortic aneurysm rupture [None]

NARRATIVE: CASE EVENT DATE: 20240618
